FAERS Safety Report 12675681 (Version 1)
Quarter: 2016Q3

REPORT INFORMATION
  Report Type: Spontaneous
  Country: US (occurrence: None)
  Receive Date: 20160822
  Receipt Date: 20160822
  Transmission Date: 20161109
  Serious: Yes (Disabling)
  Sender: FDA-Public Use
  Company Number: None

PATIENT
  Age: 31 Year
  Sex: Male
  Weight: 95.26 kg

DRUGS (5)
  1. MODAFINIL. [Concomitant]
     Active Substance: MODAFINIL
  2. D-AMPHETAMINE SALT COMBO, 5 MG TEVA [Suspect]
     Active Substance: AMPHETAMINE ASPARTATE\AMPHETAMINE SULFATE\DEXTROAMPHETAMINE SACCHARATE\DEXTROAMPHETAMINE SULFATE
     Indication: ATTENTION DEFICIT/HYPERACTIVITY DISORDER
     Dosage: 120 CAPSULE(S) TWICE A DAY TAKEN BY MOUTH
     Route: 048
     Dates: start: 20120901, end: 20160818
  3. FISH OIL [Concomitant]
     Active Substance: FISH OIL
  4. PREVAGEN [Concomitant]
     Active Substance: DIETARY SUPPLEMENT
  5. ADDERALL XR [Concomitant]
     Active Substance: AMPHETAMINE ASPARTATE\AMPHETAMINE SULFATE\DEXTROAMPHETAMINE SACCHARATE\DEXTROAMPHETAMINE SULFATE

REACTIONS (2)
  - Palpitations [None]
  - Product quality issue [None]

NARRATIVE: CASE EVENT DATE: 20160809
